FAERS Safety Report 5278562-4 (Version None)
Quarter: 2007Q1

REPORT INFORMATION
  Report Type: 
  Country: None (occurrence: None)
  Receive Date: 20070322
  Receipt Date: 20070319
  Transmission Date: 20070707
  Serious: Yes (Death)
  Sender: FDA-Public Use
  Company Number: 2007-01378

PATIENT
  Age: 6 Year

DRUGS (3)
  1. HYDROXYZINE HYDROCHLORIDE [Suspect]
  2. METHADONE HCL [Concomitant]
  3. CHLORAL HYDRATE (CHLORAL HYDRATE) [Suspect]

REACTIONS (1)
  - CARDIO-RESPIRATORY ARREST [None]
